FAERS Safety Report 15553582 (Version 4)
Quarter: 2018Q4

REPORT INFORMATION
  Report Type: Report from Study
  Country: None (occurrence: US)
  Receive Date: 20181026
  Receipt Date: 20181220
  Transmission Date: 20190205
  Serious: Yes (Death, Hospitalization, Other)
  Sender: FDA-Public Use
  Company Number: US-ABBVIE-18K-163-2533777-00

PATIENT
  Sex: Female

DRUGS (1)
  1. HUMIRA [Suspect]
     Active Substance: ADALIMUMAB
     Indication: RHEUMATOID ARTHRITIS
     Route: 058
     Dates: start: 20180514, end: 2018

REACTIONS (7)
  - Vomiting [Unknown]
  - Sepsis [Unknown]
  - Renal failure [Unknown]
  - Back pain [Unknown]
  - Cardiac failure [Fatal]
  - Thrombosis [Fatal]
  - Asthenia [Unknown]

NARRATIVE: CASE EVENT DATE: 2018
